FAERS Safety Report 6645211-X (Version None)
Quarter: 2010Q1

REPORT INFORMATION
  Report Type: 
  Country: None (occurrence: None)
  Receive Date: 20100322
  Receipt Date: 20091009
  Transmission Date: 20100710
  Serious: Yes (Death)
  Sender: FDA-Public Use
  Company Number: PHEH2009US18954

PATIENT
  Sex: Male

DRUGS (1)
  1. GLEEVEC [Suspect]
     Indication: PANCREATIC CARCINOMA
     Dosage: 800 MG, DAILY
     Route: 048
     Dates: start: 20090520

REACTIONS (1)
  - DEATH [None]
